FAERS Safety Report 7337652-2 (Version None)
Quarter: 2011Q1

REPORT INFORMATION
  Report Type: 
  Country: None (occurrence: None)
  Receive Date: 20110224
  Receipt Date: 20110215
  Transmission Date: 20110831
  Serious: Yes (Hospitalization, Disabling, Congenital Anomaly)
  Sender: FDA-Public Use
  Company Number: GER/UKI/11/0017429

PATIENT

DRUGS (5)
  1. VENTOLIN [Concomitant]
  2. FLUOXETINE [Suspect]
     Indication: DRUG EXPOSURE DURING PREGNANCY
     Dosage: 20 MG, 1 IN 1 D, TRASPLACENTAL
     Route: 062
     Dates: start: 20100413, end: 20100617
  3. FLUOXETINE [Suspect]
     Indication: DEPRESSION
     Dosage: 20 MG, 1 IN 1 D, TRASPLACENTAL
     Route: 062
     Dates: start: 20100413, end: 20100617
  4. FEXOFENADINE HCL [Concomitant]
  5. CLENIL MODULITE (BECLOMETASONE DIPROPIONATE) [Concomitant]

REACTIONS (2)
  - MATERNAL DEATH AFFECTING FOETUS [None]
  - MULTIPLE CONGENITAL ABNORMALITIES [None]
